FAERS Safety Report 8471341-6 (Version None)
Quarter: 2012Q2

REPORT INFORMATION
  Report Type: 
  Country: None (occurrence: None)
  Receive Date: 20120627
  Receipt Date: 20120620
  Transmission Date: 20120825
  Serious: Yes (Other)
  Sender: FDA-Public Use
  Company Number: FR-ABBOTT-12P-056-0933775-00

PATIENT
  Age: 51 Year
  Sex: Female

DRUGS (9)
  1. MEDIATOR [Suspect]
     Indication: DIABETES MELLITUS
     Route: 048
  2. SITAGLIPTIN PHOSPHATE [Suspect]
     Indication: DIABETES MELLITUS
     Route: 048
  3. DEPAKOTE [Suspect]
     Indication: BIPOLAR DISORDER
     Route: 048
     Dates: end: 20110101
  4. RISPERIDONE [Suspect]
     Indication: PRODUCT USED FOR UNKNOWN INDICATION
     Route: 048
     Dates: end: 20110101
  5. ABILIFY [Suspect]
     Indication: PRODUCT USED FOR UNKNOWN INDICATION
     Route: 048
     Dates: end: 20110101
  6. METFORMIN HYDROCHLORIDE [Suspect]
     Indication: DIABETES MELLITUS
     Route: 048
  7. NOVONORM [Suspect]
     Indication: DIABETES MELLITUS
     Route: 048
  8. GLUCOPHAGE [Suspect]
     Indication: DIABETES MELLITUS
     Route: 048
  9. DIAMICRON [Suspect]
     Indication: DIABETES MELLITUS
     Route: 048

REACTIONS (1)
  - HEPATIC CIRRHOSIS [None]
